FAERS Safety Report 8716246 (Version 3)
Quarter: 2013Q1

REPORT INFORMATION
  Report Type: Spontaneous
  Country: BE (occurrence: BE)
  Receive Date: 20120810
  Receipt Date: 20130201
  Transmission Date: 20140127
  Serious: Yes (Other)
  Sender: FDA-Public Use
  Company Number: BE-AMGEN-BELSP2012049608

PATIENT
  Age: 78 Year
  Sex: Female

DRUGS (7)
  1. NPLATE [Suspect]
     Indication: IDIOPATHIC THROMBOCYTOPENIC PURPURA
     Dosage: 250 MUG, QWK
  2. CYMBALTA [Concomitant]
  3. L THYROXIN [Concomitant]
     Dosage: 100 MUG, UNK
  4. SIMVASTATIN [Concomitant]
     Dosage: 20 MG, UNK
  5. FORZATEN [Concomitant]
  6. ASAFLOW [Concomitant]
     Dosage: 80 MG, UNK
  7. MEDROL                             /00049601/ [Concomitant]
     Dosage: 8 MG, UNK

REACTIONS (2)
  - Pelvic fracture [Unknown]
  - Fall [Unknown]
